FAERS Safety Report 8946913 (Version 1)
Quarter: 2012Q4

REPORT INFORMATION
  Report Type: 
  Country: ES (occurrence: ES)
  Receive Date: 20121205
  Receipt Date: 20121205
  Transmission Date: 20130627
  Serious: Yes (Hospitalization, Other)
  Sender: FDA-Public Use
  Company Number: ES-ELI_LILLY_AND_COMPANY-ES201211008056

PATIENT
  Age: 77 Year
  Sex: Male

DRUGS (1)
  1. FORSTEO [Suspect]
     Dosage: 20 ug, qd
     Dates: start: 20120105

REACTIONS (2)
  - Urinary tract infection [Unknown]
  - Sepsis [Unknown]
